FAERS Safety Report 9201202 (Version 1)
Quarter: 2013Q1

REPORT INFORMATION
  Report Type: Spontaneous
  Country: US (occurrence: None)
  Receive Date: 20130327
  Receipt Date: 20130327
  Transmission Date: 20140127
  Serious: Yes (Other)
  Sender: FDA-Public Use
  Company Number: ADR-2013-00488

PATIENT
  Sex: Male

DRUGS (4)
  1. BACLOFEN INTRATHECAL [Suspect]
     Indication: MUSCLE SPASTICITY
     Route: 037
  2. DILAUDID [Concomitant]
  3. CLONIDINE [Concomitant]
  4. PRIALT [Concomitant]

REACTIONS (3)
  - Device use error [None]
  - Muscle disorder [None]
  - Drug administration error [None]
